FAERS Safety Report 8520364-7 (Version None)
Quarter: 2012Q3

REPORT INFORMATION
  Report Type: 
  Country: None (occurrence: None)
  Receive Date: 20120713
  Receipt Date: 20120713
  Transmission Date: 20120928
  Serious: Yes (Hospitalization)
  Sender: FDA-Public Use
  Company Number: None

PATIENT
  Age: 63 Year
  Sex: Male
  Weight: 77.5 kg

DRUGS (2)
  1. PEMETREXED [Suspect]
     Indication: LUNG CANCER METASTATIC
     Dosage: 1000 MG ONCE IV
     Route: 042
     Dates: start: 20120509, end: 20120509
  2. FUROSEMIDE [Suspect]
     Indication: CARDIAC FAILURE CONGESTIVE
     Dosage: MG EVERY OTHER DAY PO
     Route: 048
     Dates: start: 20120328, end: 20120415

REACTIONS (4)
  - HYPERKALAEMIA [None]
  - NEPHROPATHY TOXIC [None]
  - RENAL FAILURE ACUTE [None]
  - HYPOTENSION [None]
